FAERS Safety Report 7625335-0 (Version None)
Quarter: 2011Q3

REPORT INFORMATION
  Report Type: 
  Country: None (occurrence: None)
  Receive Date: 20110721
  Receipt Date: 20110718
  Transmission Date: 20111222
  Serious: No
  Sender: FDA-Public Use
  Company Number: US-PFIZER INC-2011123955

PATIENT
  Sex: Male
  Weight: 114.29 kg

DRUGS (5)
  1. NEURONTIN [Suspect]
     Indication: BACK PAIN
     Dosage: 700 MG TO 900 MG, 3X/DAY
     Route: 048
     Dates: start: 20110501
  2. NORVASC [Concomitant]
     Dosage: UNK
  3. LIPITOR [Concomitant]
     Dosage: UNK
  4. ZEMPLAR [Concomitant]
     Dosage: UNK
  5. GLUCOTROL [Concomitant]
     Dosage: UNK

REACTIONS (1)
  - BLOOD CREATININE INCREASED [None]
